FAERS Safety Report 7349413-9 (Version None)
Quarter: 2011Q1

REPORT INFORMATION
  Report Type: 
  Country: None (occurrence: None)
  Receive Date: 20110314
  Receipt Date: 20100309
  Transmission Date: 20110831
  Serious: No
  Sender: FDA-Public Use
  Company Number: A0849163A

PATIENT
  Age: 82 Year
  Sex: Female

DRUGS (3)
  1. DIABETES MEDICATION [Concomitant]
  2. OTHER MEDICATIONS [Concomitant]
  3. AMOXIL [Suspect]
     Indication: INFECTION PROPHYLAXIS
     Dosage: 500MG PER DAY
     Route: 048
     Dates: start: 20100308

REACTIONS (3)
  - ABDOMINAL DISCOMFORT [None]
  - PAIN [None]
  - ILL-DEFINED DISORDER [None]
